FAERS Safety Report 19019623 (Version 6)
Quarter: 2023Q4

REPORT INFORMATION
  Report Type: Report from Study
  Country: JP (occurrence: JP)
  Receive Date: 20210317
  Receipt Date: 20231226
  Transmission Date: 20240110
  Serious: Yes (Hospitalization, Other)
  Sender: FDA-Public Use
  Company Number: JP-GLAXOSMITHKLINE-JP2018JPN143799

PATIENT

DRUGS (25)
  1. BELIMUMAB [Suspect]
     Active Substance: BELIMUMAB
     Indication: Systemic lupus erythematosus
     Dosage: 10 MG/KG, EVERY TWO WEEKS
     Route: 041
     Dates: start: 20180106, end: 20180203
  2. BELIMUMAB [Suspect]
     Active Substance: BELIMUMAB
     Dosage: 10 MG/KG, EVERY FIVE WEEKS
     Route: 041
     Dates: start: 20180303, end: 20180512
  3. BELIMUMAB [Suspect]
     Active Substance: BELIMUMAB
     Dosage: 10 MG/KG, EVERY FOUR WEEKS
     Route: 041
     Dates: start: 20180512, end: 20180609
  4. BELIMUMAB [Suspect]
     Active Substance: BELIMUMAB
     Dosage: 10 MG/KG, UNK
     Route: 041
     Dates: start: 20180714, end: 20180818
  5. BELIMUMAB [Suspect]
     Active Substance: BELIMUMAB
     Dosage: 10 MG/KG, EVERY FOUR WEEKS
     Route: 041
     Dates: start: 20180818, end: 20181006
  6. BELIMUMAB [Suspect]
     Active Substance: BELIMUMAB
     Dosage: 10 MG/KG, UNK
     Route: 041
     Dates: start: 20181006, end: 20181006
  7. BELIMUMAB [Suspect]
     Active Substance: BELIMUMAB
     Dosage: 10 MG/KG, UNK
     Route: 041
     Dates: start: 20181215, end: 20181215
  8. BELIMUMAB [Suspect]
     Active Substance: BELIMUMAB
     Dosage: 10 MG/KG, UNK
     Route: 041
     Dates: start: 20190112, end: 20190112
  9. METGLUCO [Suspect]
     Active Substance: METFORMIN HYDROCHLORIDE
     Dosage: UNK
     Route: 048
  10. PREDONINE [Suspect]
     Active Substance: PREDNISOLONE
     Indication: Systemic lupus erythematosus
     Dosage: 5 MG, 1D
     Dates: start: 20160730
  11. ACTOS [Concomitant]
     Active Substance: PIOGLITAZONE HYDROCHLORIDE
     Dosage: UNK
  12. SITAGLIPTIN [Concomitant]
     Active Substance: SITAGLIPTIN
     Dosage: UNK
  13. AMLODIPINE BESYLATE\TELMISARTAN [Concomitant]
     Active Substance: AMLODIPINE BESYLATE\TELMISARTAN
     Dosage: UNK
  14. CRESTOR [Concomitant]
     Active Substance: ROSUVASTATIN CALCIUM
     Dosage: UNK
  15. BERAPROST SODIUM [Concomitant]
     Active Substance: BERAPROST SODIUM
     Indication: Systemic lupus erythematosus
     Dosage: UNK
  16. CALONAL [Concomitant]
     Active Substance: ACETAMINOPHEN
     Indication: Systemic lupus erythematosus
     Dosage: UNK
  17. SOLANAX [Concomitant]
     Active Substance: ALPRAZOLAM
     Dosage: UNK
  18. CELLCEPT [Concomitant]
     Active Substance: MYCOPHENOLATE MOFETIL
     Indication: Systemic lupus erythematosus
     Dosage: UNK
  19. LOXOPROFEN SODIUM [Concomitant]
     Active Substance: LOXOPROFEN SODIUM
     Indication: Systemic lupus erythematosus
     Dosage: UNK
  20. INSULIN GLARGINE [Concomitant]
     Active Substance: INSULIN GLARGINE
     Dosage: UNK
  21. HUMULIN R [Concomitant]
     Active Substance: INSULIN HUMAN
     Dosage: UNK
  22. HALCION [Concomitant]
     Active Substance: TRIAZOLAM
     Dosage: UNK
  23. NEXIUM [Concomitant]
     Active Substance: ESOMEPRAZOLE MAGNESIUM
     Indication: Gastritis prophylaxis
     Dosage: UNK
  24. INFLUENZA VIRUS VACCINE [Concomitant]
     Active Substance: INFLUENZA VIRUS VACCINE
     Indication: Prophylaxis
     Dosage: UNK
     Dates: start: 20171014
  25. INFLUENZA VIRUS VACCINE [Concomitant]
     Active Substance: INFLUENZA VIRUS VACCINE
     Dosage: UNK
     Dates: start: 20181006

REACTIONS (3)
  - Pancreatic carcinoma [Unknown]
  - Pancreatitis acute [Recovering/Resolving]
  - Dehydration [Recovered/Resolved]

NARRATIVE: CASE EVENT DATE: 20180412
